FAERS Safety Report 4843660-3 (Version None)
Quarter: 2005Q4

REPORT INFORMATION
  Report Type: 
  Country: None (occurrence: None)
  Receive Date: 20051202
  Receipt Date: 20051121
  Transmission Date: 20060501
  Serious: Yes (Hospitalization, Other)
  Sender: FDA-Public Use
  Company Number: JP-JNJFOC-20050205090

PATIENT
  Age: 58 Year
  Sex: Male

DRUGS (7)
  1. RISPERDAL [Suspect]
     Indication: SCHIZOPHRENIA
     Route: 048
  2. CYCLOSPORINE [Concomitant]
     Indication: RENAL TRANSPLANT
  3. NILVADIPINE [Concomitant]
     Indication: HYPERTENSION
     Route: 048
  4. METOPROLOL TARTRATE [Concomitant]
     Indication: HYPERTENSION
     Route: 048
  5. METHYLPREDNISOLONE [Concomitant]
     Indication: RENAL TRANSPLANT
     Route: 048
  6. BROMAZEPAM [Concomitant]
     Indication: ANXIETY
     Route: 048
  7. AZATHIOPRINE [Concomitant]
     Indication: RENAL TRANSPLANT

REACTIONS (2)
  - HERPES ZOSTER [None]
  - INAPPROPRIATE ANTIDIURETIC HORMONE SECRETION [None]
